FAERS Safety Report 11291254 (Version 2)
Quarter: 2015Q3

REPORT INFORMATION
  Report Type: Spontaneous
  Country: US (occurrence: US)
  Receive Date: 20150722
  Receipt Date: 20150805
  Transmission Date: 20151125
  Serious: No
  Sender: FDA-Public Use
  Company Number: US-ASTRAZENECA-2015SE67437

PATIENT
  Sex: Female
  Weight: 52.2 kg

DRUGS (4)
  1. PULMICORT TURBUHALER [Suspect]
     Active Substance: BUDESONIDE
     Indication: ASTHMA
     Dosage: 2 PUFFS IN THE MORNING
     Route: 055
     Dates: start: 201507
  2. PULMICORT TURBUHALER [Suspect]
     Active Substance: BUDESONIDE
     Indication: ASTHMA
     Dosage: ONE PUFF IN THE MORNING AND ONE PUFF IN THE EVENING
     Route: 055
  3. ZYRTEC [Concomitant]
     Active Substance: CETIRIZINE HYDROCHLORIDE
     Indication: MULTIPLE ALLERGIES
     Dosage: DAILY
     Route: 048
  4. PRENATAL VITAMIN [Concomitant]
     Active Substance: VITAMINS
     Indication: BREAST FEEDING
     Dosage: DAILY
     Route: 048
     Dates: start: 201311

REACTIONS (4)
  - Insomnia [Unknown]
  - Device ineffective [Unknown]
  - Intentional product misuse [Unknown]
  - Product quality issue [Unknown]
